FAERS Safety Report 19052065 (Version 1)
Quarter: 2021Q1

REPORT INFORMATION
  Report Type: Spontaneous
  Country: US (occurrence: US)
  Receive Date: 20210324
  Receipt Date: 20210324
  Transmission Date: 20210420
  Serious: Yes (Hospitalization, Other)
  Sender: FDA-Public Use
  Company Number: US-PFIZER INC-2021285181

PATIENT
  Age: 43 Year
  Sex: Female

DRUGS (18)
  1. VICODIN [Suspect]
     Active Substance: ACETAMINOPHEN\HYDROCODONE BITARTRATE
     Indication: PAIN
     Dosage: UNK
     Route: 048
  2. ZESTRIL [Suspect]
     Active Substance: LISINOPRIL
     Indication: STAPHYLOCOCCAL INFECTION
  3. ZESTRIL [Suspect]
     Active Substance: LISINOPRIL
     Indication: PAIN
     Dosage: UNK
  4. HYDRODIURIL [Suspect]
     Active Substance: HYDROCHLOROTHIAZIDE
     Indication: STAPHYLOCOCCAL INFECTION
     Dosage: UNK
  5. CEFTAROLINE [Suspect]
     Active Substance: CEFTAROLINE
     Dosage: UNK
  6. VICODIN [Suspect]
     Active Substance: ACETAMINOPHEN\HYDROCODONE BITARTRATE
     Indication: STAPHYLOCOCCAL INFECTION
  7. VANCOCIN [Suspect]
     Active Substance: VANCOMYCIN HYDROCHLORIDE
     Indication: STAPHYLOCOCCAL INFECTION
     Dosage: UNK
  8. NORVASC [Suspect]
     Active Substance: AMLODIPINE BESYLATE
     Indication: PAIN
  9. METHYLPREDNISOLONE. [Suspect]
     Active Substance: METHYLPREDNISOLONE
     Dosage: UNK
  10. PRINIVIL [Suspect]
     Active Substance: LISINOPRIL
     Indication: STAPHYLOCOCCAL INFECTION
     Dosage: UNK
  11. NORVASC [Suspect]
     Active Substance: AMLODIPINE BESYLATE
     Indication: STAPHYLOCOCCAL INFECTION
     Dosage: UNK
  12. PRINIVIL [Suspect]
     Active Substance: LISINOPRIL
     Indication: PAIN
  13. KETOROLAC TROMETAMINE [Suspect]
     Active Substance: KETOROLAC TROMETHAMINE
     Dosage: UNK
  14. CEFTRIAXONE SODIUM. [Suspect]
     Active Substance: CEFTRIAXONE SODIUM
     Dosage: UNK
  15. DAPTOMYCIN. [Suspect]
     Active Substance: DAPTOMYCIN
     Dosage: UNK
  16. DOXYCYCLINE HYCLATE. [Suspect]
     Active Substance: DOXYCYCLINE HYCLATE
     Dosage: UNK
  17. HYDRODIURIL [Suspect]
     Active Substance: HYDROCHLOROTHIAZIDE
     Indication: PAIN
  18. VANCOCIN [Suspect]
     Active Substance: VANCOMYCIN HYDROCHLORIDE
     Indication: PAIN

REACTIONS (12)
  - Osteonecrosis [Unknown]
  - Intervertebral discitis [Unknown]
  - Tubulointerstitial nephritis [Unknown]
  - Arteriosclerosis [Unknown]
  - Atrophy [Unknown]
  - Blood creatinine increased [Unknown]
  - Off label use [Unknown]
  - Osteomyelitis [Unknown]
  - Back pain [Unknown]
  - Asymptomatic bacteriuria [Unknown]
  - Fibrosis [Unknown]
  - Inflammatory marker increased [Unknown]
